FAERS Safety Report 7077411-1 (Version None)
Quarter: 2010Q4

REPORT INFORMATION
  Report Type: 
  Country: None (occurrence: None)
  Receive Date: 20101021
  Receipt Date: 20101006
  Transmission Date: 20110411
  Serious: Yes (Death)
  Sender: FDA-Public Use
  Company Number: 1000015301

PATIENT
  Sex: Male

DRUGS (9)
  1. CITALOPRAM HYDROBROMIDE [Suspect]
     Indication: SCHIZOPHRENIA
     Dosage: 20 MG (20 MG, 1 IN 1 D), ORAL
     Route: 048
  2. AMISULPRIDE (AMISULPRIDE) [Suspect]
     Dosage: 400 MG (400 MG, ONCE), ORAL
     Route: 048
  3. CLOZAPINE [Suspect]
     Dosage: 425 MG (425 MG, 1 IN 1 D), ORAL
     Route: 048
  4. RAMIPRIL [Concomitant]
  5. HYOSCINE HYDROBROMIDE (HYOSCINE HYDROBROMIDE) (HYOSCINE HYDROBROMIDE) [Concomitant]
  6. AMLODIPINE [Concomitant]
  7. FYBOGEL (PLANTAGO OVATA) (PLANTAGO OVATA) [Concomitant]
  8. SIMVASTATIN [Concomitant]
  9. LACTULOSE (LACTULOSE) (LACTULOSE) [Concomitant]

REACTIONS (2)
  - DRUG LEVEL INCREASED [None]
  - OFF LABEL USE [None]
